FAERS Safety Report 18277605 (Version 1)
Quarter: 2020Q3

REPORT INFORMATION
  Report Type: Report from Study
  Country: NL (occurrence: NL)
  Receive Date: 20200917
  Receipt Date: 20200917
  Transmission Date: 20201103
  Serious: Yes (Other)
  Sender: FDA-Public Use
  Company Number: NL-TEVA-2020-NL-1827251

PATIENT
  Age: 30 Year
  Sex: Male

DRUGS (2)
  1. MESALAZINE / BRAND NAME NOT SPECIFIED [Suspect]
     Active Substance: MESALAMINE
     Indication: COLITIS ULCERATIVE
     Dosage: 4.5 GRAM DAILY;
     Dates: start: 20190701, end: 20191001
  2. MESALAZINE KLYSMA 10MG/ML / BRAND NAME NOT SPECIFIED [Concomitant]
     Dosage: 1G, N, 1 GRAM,THERAPY END DATE : ASKED BUT UNKNOWN
     Dates: start: 20190701

REACTIONS (1)
  - Polyneuropathy [Recovered/Resolved]

NARRATIVE: CASE EVENT DATE: 20191001
